FAERS Safety Report 12875438 (Version 2)
Quarter: 2016Q4

REPORT INFORMATION
  Report Type: Spontaneous
  Country: JP (occurrence: JP)
  Receive Date: 20161024
  Receipt Date: 20161103
  Transmission Date: 20170207
  Serious: Yes (Death)
  Sender: FDA-Public Use
  Company Number: JP-ROCHE-1845425

PATIENT
  Age: 56 Year
  Sex: Female
  Weight: 55 kg

DRUGS (2)
  1. AVASTIN [Suspect]
     Active Substance: BEVACIZUMAB
     Indication: OVARIAN CANCER
     Dosage: DOSAGE IS UNCERTAIN.?TREATMENT LINE: 2?COMPLETED TREATMENT CYCLE NUMBER: 1
     Route: 041
     Dates: start: 20161006, end: 20161006
  2. GEMZAR [Concomitant]
     Active Substance: GEMCITABINE HYDROCHLORIDE
     Indication: OVARIAN CANCER
     Dosage: ONLY BY ONE COURSE
     Route: 041
     Dates: start: 20161006, end: 20161006

REACTIONS (2)
  - Ovarian cancer [Fatal]
  - Vomiting [Fatal]

NARRATIVE: CASE EVENT DATE: 20161006
